FAERS Safety Report 14341342 (Version 3)
Quarter: 2018Q1

REPORT INFORMATION
  Report Type: Spontaneous
  Country: HU (occurrence: HU)
  Receive Date: 20180102
  Receipt Date: 20180218
  Transmission Date: 20180509
  Serious: Yes (Other)
  Sender: FDA-Public Use
  Company Number: HU-TEVA-2017-HU-838370

PATIENT
  Age: 69 Year
  Sex: Male

DRUGS (2)
  1. LEVOBUNOLOL [Concomitant]
     Active Substance: LEVOBUNOLOL
     Indication: INTRAOCULAR PRESSURE INCREASED
     Route: 047
  2. ACETAZOLAMIDE. [Suspect]
     Active Substance: ACETAZOLAMIDE
     Indication: INTRAOCULAR PRESSURE INCREASED
     Dosage: 500 MILLIGRAM DAILY;
     Route: 048

REACTIONS (1)
  - Choroidal detachment [Recovered/Resolved]
